FAERS Safety Report 20938854 (Version 2)
Quarter: 2022Q2

REPORT INFORMATION
  Report Type: Spontaneous
  Country: DE (occurrence: None)
  Receive Date: 20220609
  Receipt Date: 20220623
  Transmission Date: 20220721
  Serious: Yes (Other)
  Sender: FDA-Public Use
  Company Number: 2021A308294

PATIENT
  Sex: Female

DRUGS (1)
  1. SEROQUEL [Suspect]
     Active Substance: QUETIAPINE FUMARATE
     Dosage: 175.0MG UNKNOWN
     Route: 048

REACTIONS (9)
  - Exposure during pregnancy [Unknown]
  - Anaemia [Unknown]
  - Serum ferritin decreased [Unknown]
  - Full blood count decreased [Unknown]
  - Leukaemia [Unknown]
  - Feeling abnormal [Unknown]
  - Disturbance in attention [Unknown]
  - Restless legs syndrome [Unknown]
  - Drug ineffective [Unknown]
